FAERS Safety Report 7930009-2 (Version None)
Quarter: 2011Q4

REPORT INFORMATION
  Report Type: 
  Country: None (occurrence: None)
  Receive Date: 20111117
  Receipt Date: 20111109
  Transmission Date: 20120403
  Serious: Yes (Other)
  Sender: FDA-Public Use
  Company Number: USA/USA/11/0021936

PATIENT
  Age: 24 Year
  Sex: Female

DRUGS (3)
  1. DEPOT MEDROXYPROGESTERONE (MEDROXYPROGESTERONE) [Concomitant]
  2. VALACYCLOVIR (VALACICLOVIR HYDROCHLORIDE) [Concomitant]
  3. CETIRIZINE [Suspect]
     Indication: PRODUCT USED FOR UNKNOWN INDICATION
     Dosage: 10 MG, 1 IN 1 D

REACTIONS (9)
  - MUSCLE TWITCHING [None]
  - ALCOHOL POISONING [None]
  - GAIT DISTURBANCE [None]
  - COORDINATION ABNORMAL [None]
  - DYSTONIA [None]
  - LACERATION [None]
  - GRIMACING [None]
  - DYSARTHRIA [None]
  - DYSKINESIA [None]
